FAERS Safety Report 4922247-8 (Version None)
Quarter: 2006Q1

REPORT INFORMATION
  Report Type: 
  Country: None (occurrence: None)
  Receive Date: 20060224
  Receipt Date: 20041123
  Transmission Date: 20060701
  Serious: Yes (Other)
  Sender: FDA-Public Use
  Company Number: US-MERCK-0411USA03932

PATIENT
  Age: 51 Year
  Sex: Male
  Weight: 101 kg

DRUGS (1)
  1. VIOXX [Suspect]
     Route: 048
     Dates: start: 20010301, end: 20030101

REACTIONS (12)
  - ANGINA PECTORIS [None]
  - CHEST PAIN [None]
  - COLITIS [None]
  - CORONARY ARTERY DISEASE [None]
  - DEPRESSION [None]
  - ERECTILE DYSFUNCTION [None]
  - ISCHAEMIA [None]
  - LIMB DISCOMFORT [None]
  - MYOCARDIAL INFARCTION [None]
  - OVERDOSE [None]
  - PALPITATIONS [None]
  - SINUSITIS [None]
